FAERS Safety Report 19629500 (Version 1)
Quarter: 2021Q3

REPORT INFORMATION
  Report Type: Spontaneous
  Country: US (occurrence: US)
  Receive Date: 20210728
  Receipt Date: 20210728
  Transmission Date: 20211014
  Serious: No
  Sender: FDA-Public Use
  Company Number: US-EPIZYME, INC-2021USEPIZYME0255

PATIENT

DRUGS (8)
  1. TAZVERIK [Suspect]
     Active Substance: TAZEMETOSTAT HYDROBROMIDE
     Indication: B-CELL LYMPHOMA
     Dosage: 600 MG, BID
     Route: 048
     Dates: start: 20200805
  2. TAZVERIK [Suspect]
     Active Substance: TAZEMETOSTAT HYDROBROMIDE
     Dosage: 400 MG, BID
     Route: 048
  3. ESTRING [Concomitant]
     Active Substance: ESTRADIOL
     Indication: PRODUCT USED FOR UNKNOWN INDICATION
     Dosage: 2 MG
     Route: 065
  4. PROCHLORPERAZINE MALEATE. [Concomitant]
     Active Substance: PROCHLORPERAZINE MALEATE
     Indication: PRODUCT USED FOR UNKNOWN INDICATION
     Dosage: 10 MG
     Route: 065
  5. TAZVERIK [Suspect]
     Active Substance: TAZEMETOSTAT HYDROBROMIDE
     Dosage: 600 MG, BID
     Route: 048
  6. EFFEXOR [Concomitant]
     Active Substance: VENLAFAXINE HYDROCHLORIDE
     Dosage: 5 MG
     Route: 065
  7. OXYCODONE HYDROCHLORIDE. [Concomitant]
     Active Substance: OXYCODONE HYDROCHLORIDE
     Indication: PRODUCT USED FOR UNKNOWN INDICATION
  8. EFFEXOR [Concomitant]
     Active Substance: VENLAFAXINE HYDROCHLORIDE
     Indication: PRODUCT USED FOR UNKNOWN INDICATION
     Dosage: 75 MG
     Route: 065

REACTIONS (2)
  - Nausea [Unknown]
  - Intentional product use issue [Unknown]
